FAERS Safety Report 4969872-6 (Version None)
Quarter: 2006Q2

REPORT INFORMATION
  Report Type: 
  Country: None (occurrence: None)
  Receive Date: 20060406
  Receipt Date: 20060322
  Transmission Date: 20061013
  Serious: Yes (Other)
  Sender: FDA-Public Use
  Company Number: US200603005642

PATIENT
  Age: 47 Year
  Sex: Female

DRUGS (3)
  1. PROZAC [Suspect]
     Indication: PREMENSTRUAL SYNDROME
     Dosage: 10 MG, DAILY (1/D), ORAL  : 10 MG
     Route: 048
     Dates: start: 20050301, end: 20060301
  2. PROZAC [Suspect]
     Indication: PREMENSTRUAL SYNDROME
     Dosage: 10 MG, DAILY (1/D), ORAL  : 10 MG
     Route: 048
     Dates: start: 20060301
  3. FLUOXETINE HYDROCHLORIDE [Concomitant]

REACTIONS (8)
  - AGGRESSION [None]
  - AGITATION [None]
  - ASTHENIA [None]
  - PHARMACEUTICAL PRODUCT COMPLAINT [None]
  - SLEEP DISORDER [None]
  - SUICIDAL IDEATION [None]
  - TENSION HEADACHE [None]
  - THINKING ABNORMAL [None]
